FAERS Safety Report 9847896 (Version 1)
Quarter: 2013Q4

REPORT INFORMATION
  Report Type: Spontaneous
  Country: US (occurrence: None)
  Receive Date: 20131226
  Receipt Date: 20131226
  Transmission Date: 20140711
  Serious: Yes (Other)
  Sender: FDA-Public Use
  Company Number: PHEH2013US002410

PATIENT
  Age: 87 Year
  Sex: Female

DRUGS (1)
  1. AFINITOR (RAD) UNKNOWN [Suspect]
     Indication: BREAST CANCER STAGE IV
     Route: 048

REACTIONS (5)
  - Neoplasm [None]
  - Malignant neoplasm progression [None]
  - Metastases to spine [None]
  - Metastases to bone [None]
  - Metastases to adrenals [None]
